FAERS Safety Report 8537730-6 (Version None)
Quarter: 2012Q3

REPORT INFORMATION
  Report Type: 
  Country: None (occurrence: None)
  Receive Date: 20120725
  Receipt Date: 20120723
  Transmission Date: 20120928
  Serious: Yes (Life-Threatening, Other)
  Sender: FDA-Public Use
  Company Number: PHHY2012GB063184

PATIENT
  Age: 55 Year
  Sex: Male

DRUGS (3)
  1. AMOXICILLIN [Suspect]
     Indication: TOOTH ABSCESS
     Route: 048
     Dates: start: 20120611, end: 20120616
  2. OMEPRAZOLE [Concomitant]
     Indication: DYSPEPSIA
     Dosage: 20 MG
     Route: 048
     Dates: start: 20111021
  3. METRONIDAZOLE [Suspect]
     Indication: TOOTH ABSCESS
     Route: 048
     Dates: start: 20120611, end: 20120616

REACTIONS (1)
  - CLOSTRIDIAL INFECTION [None]
